FAERS Safety Report 18975086 (Version 2)
Quarter: 2021Q2

REPORT INFORMATION
  Report Type: Spontaneous
  Country: US (occurrence: US)
  Receive Date: 20210306
  Receipt Date: 20210429
  Transmission Date: 20210717
  Serious: Yes (Death, Hospitalization, Other)
  Sender: FDA-Public Use
  Company Number: US-TEVA-2021-US-1888696

PATIENT
  Age: 74 Year
  Sex: Male
  Weight: 90.7 kg

DRUGS (16)
  1. VALSARTAN TEVA [Suspect]
     Active Substance: VALSARTAN
     Indication: HYPERTENSION
     Dosage: DOSAGE: 320 MG
     Route: 048
     Dates: start: 20150710, end: 20160117
  2. DIOVAN [Suspect]
     Active Substance: VALSARTAN
     Indication: HYPERTENSION
     Dosage: DOSAGE: 320 MG
     Route: 048
     Dates: end: 2018
  3. HYDROCHLOROTHIAZIDE. [Concomitant]
     Active Substance: HYDROCHLOROTHIAZIDE
     Indication: HYPERTENSION
     Dosage: 25 MILLIGRAM DAILY;
     Dates: start: 2018, end: 2020
  4. ALLOPURINOL. [Concomitant]
     Active Substance: ALLOPURINOL
     Indication: NEPHROLITHIASIS
     Dosage: 300 MILLIGRAM DAILY;
     Dates: start: 2019, end: 2019
  5. GARLIC. [Concomitant]
     Active Substance: GARLIC
     Dosage: 300 MILLIGRAM DAILY;
     Route: 048
     Dates: end: 2020
  6. POTASSIUM CHLORIDE. [Concomitant]
     Active Substance: POTASSIUM CHLORIDE
     Dosage: 20 MILLIEQUIVALENTS DAILY;
     Dates: end: 2020
  7. VALSARTAN OHM LABORATORIES [Suspect]
     Active Substance: VALSARTAN
     Indication: HYPERTENSION
     Dosage: DOSAGE: 320MG
     Route: 048
  8. PROAIR HFA [Concomitant]
     Active Substance: ALBUTEROL SULFATE
     Indication: DYSPNOEA
     Dosage: 90 MCG AS NEEDED
     Dates: start: 2018, end: 2019
  9. TOPROL XL [Concomitant]
     Active Substance: METOPROLOL SUCCINATE
     Indication: HYPERTENSION
     Dosage: 25 MILLIGRAM DAILY;
     Dates: start: 2017, end: 2017
  10. SYMBICORT [Concomitant]
     Active Substance: BUDESONIDE\FORMOTEROL FUMARATE DIHYDRATE
     Indication: DYSPNOEA
     Dosage: 160?4.5 MG AS NEEDED
     Dates: start: 2016, end: 2017
  11. AMLODIPINE [Concomitant]
     Active Substance: AMLODIPINE BESYLATE
     Indication: HYPERTENSION
     Dosage: 5 MILLIGRAM DAILY;
     Dates: start: 2019, end: 2019
  12. VALSARTAN JUBILANT [Suspect]
     Active Substance: VALSARTAN
     Indication: HYPERTENSION
     Dosage: DOSAGE: 320MG
     Route: 048
  13. OMEPRAZOLE. [Concomitant]
     Active Substance: OMEPRAZOLE
     Indication: DYSPEPSIA
     Dosage: 20 MILLIGRAM DAILY;
     Dates: start: 2018, end: 2019
  14. VALSARTAN SOLCO [Suspect]
     Active Substance: VALSARTAN
     Indication: HYPERTENSION
     Dosage: DOSAGE: 320MG
     Route: 048
     Dates: start: 20160821, end: 20180921
  15. VALSARTAN MYLAN [Suspect]
     Active Substance: VALSARTAN
     Indication: HYPERTENSION
     Dosage: DOSAGE: 320MG
     Route: 048
  16. VALSARTAN AUROBINDO [Suspect]
     Active Substance: VALSARTAN
     Indication: HYPERTENSION
     Dosage: DOSAGE: 320MG
     Route: 048

REACTIONS (2)
  - Respiratory failure [Fatal]
  - Follicular lymphoma [Unknown]
